FAERS Safety Report 17579796 (Version 1)
Quarter: 2020Q1

REPORT INFORMATION
  Report Type: Spontaneous
  Country: IT (occurrence: IT)
  Receive Date: 20200325
  Receipt Date: 20200325
  Transmission Date: 20200409
  Serious: Yes (Hospitalization)
  Sender: FDA-Public Use
  Company Number: IT-JNJFOC-20200327006

PATIENT
  Age: 79 Year
  Sex: Female

DRUGS (8)
  1. SOLDESAM [Concomitant]
     Active Substance: DEXAMETHASONE
     Dosage: UNK
  2. DUROGESIC [Concomitant]
     Active Substance: FENTANYL
     Dosage: UNK
  3. RIVAROXABAN [Suspect]
     Active Substance: RIVAROXABAN
     Indication: ATRIAL FIBRILLATION
     Dosage: UNK
     Route: 048
     Dates: start: 20191121, end: 20200220
  4. CARDICOR [Concomitant]
     Active Substance: BISOPROLOL
     Dosage: UNK
  5. LANSOX [Concomitant]
     Active Substance: LANSOPRAZOLE
     Dosage: UNK
  6. WELLBUTRIN [Concomitant]
     Active Substance: BUPROPION HYDROCHLORIDE
     Dosage: UNK
  7. LASIX [Concomitant]
     Active Substance: FUROSEMIDE
     Dosage: UNK
  8. LYRICA [Concomitant]
     Active Substance: PREGABALIN
     Dosage: 2 DF
     Route: 048

REACTIONS (1)
  - Anaemia megaloblastic [Recovering/Resolving]

NARRATIVE: CASE EVENT DATE: 20200220
